FAERS Safety Report 24271768 (Version 2)
Quarter: 2024Q3

REPORT INFORMATION
  Report Type: Spontaneous
  Country: ES (occurrence: ES)
  Receive Date: 20240902
  Receipt Date: 20240910
  Transmission Date: 20241016
  Serious: No
  Sender: ORGANON
  Company Number: ES-TEVA-VS-3185695

PATIENT
  Age: 78 Year
  Sex: Female

DRUGS (16)
  1. LOSARTAN POTASSIUM [Suspect]
     Active Substance: LOSARTAN POTASSIUM
     Indication: Hypertension
     Dosage: REDUCE THE DOSE OF LOSARTAN TO 50 MG/24 HOURS
     Route: 065
  2. LOSARTAN POTASSIUM [Suspect]
     Active Substance: LOSARTAN POTASSIUM
     Indication: Hypertension
     Dosage: 100 MG/24 H 1-0-0
     Route: 048
     Dates: start: 2014, end: 202310
  3. LOSARTAN POTASSIUM [Suspect]
     Active Substance: LOSARTAN POTASSIUM
     Indication: Diabetes mellitus
  4. PREGABALIN [Suspect]
     Active Substance: PREGABALIN
     Indication: Neuralgia
     Dosage: 100 MG/12 H 1-0-1
     Route: 065
     Dates: start: 2019
  5. MANIDIPINE [Suspect]
     Active Substance: MANIDIPINE
     Indication: Hypertension
     Dosage: 20MG/24 H 0-1-0
     Route: 048
     Dates: start: 2014, end: 202310
  6. MANIDIPINE [Suspect]
     Active Substance: MANIDIPINE
     Indication: Hypertension
  7. DOXAZOSIN MESYLATE [Concomitant]
     Active Substance: DOXAZOSIN MESYLATE
     Indication: Hypertension
     Dosage: 2 MG/24 H 0-0-1
     Dates: start: 2014
  8. INSULIN GLARGINE [Concomitant]
     Active Substance: INSULIN GLARGINE
     Indication: Diabetes mellitus
     Dosage: 74 UI/24 H 1-0-0
     Dates: start: 2014
  9. TORSEMIDE [Concomitant]
     Active Substance: TORSEMIDE
     Indication: Oedema
     Dosage: 10 MG/24 H 1-0-0
     Dates: start: 2023
  10. OMEPRAZOLE [Concomitant]
     Active Substance: OMEPRAZOLE
     Indication: Prophylaxis against gastrointestinal ulcer
     Dosage: 20 MG/24 H 1-0-0
     Dates: start: 2014
  11. OMEPRAZOLE [Concomitant]
     Active Substance: OMEPRAZOLE
     Indication: Gastrointestinal disorder prophylaxis
     Dosage: 20 MG/24 H 1-0-0
     Dates: start: 2014
  12. BRIMONIDINA [Concomitant]
     Indication: Ocular hypertension
     Dosage: 1 DROP/12 H (1-0-1)
     Dates: start: 2018
  13. DULAGLUTIDE [Concomitant]
     Active Substance: DULAGLUTIDE
     Indication: Diabetes mellitus
     Dosage: 1,5 MG/WEEK 1 TIME/WEEK
     Dates: start: 2014
  14. ASPIRIN [Concomitant]
     Active Substance: ASPIRIN
     Indication: Prophylaxis
     Dosage: 100 MG/24 H 1-0-0
     Dates: start: 2014
  15. SIMVASTATIN [Concomitant]
     Active Substance: SIMVASTATIN
     Indication: Hypercholesterolaemia
     Dosage: 40 MG/24 H 0-0-1
     Dates: start: 2014
  16. INSULIN LISPRO [Concomitant]
     Active Substance: INSULIN LISPRO
     Indication: Diabetes mellitus
     Dosage: 20 UI/24 H 0-1-0
     Dates: start: 2014

REACTIONS (7)
  - Hypotension [Recovered/Resolved]
  - Fatigue [Recovered/Resolved]
  - Confusional state [Recovered/Resolved]
  - Overdose [Recovered/Resolved]
  - Asthenia [Recovered/Resolved]
  - Dizziness [Recovered/Resolved]
  - Overdose [Unknown]

NARRATIVE: CASE EVENT DATE: 20230101
